FAERS Safety Report 7804807-X (Version None)
Quarter: 2011Q4

REPORT INFORMATION
  Report Type: 
  Country: None (occurrence: None)
  Receive Date: 20111010
  Receipt Date: 20111004
  Transmission Date: 20120403
  Serious: Yes (Death, Other)
  Sender: FDA-Public Use
  Company Number: ES-JNJFOC-20111001983

PATIENT
  Age: 51 Year
  Sex: Female

DRUGS (26)
  1. CARBOPLATIN [Suspect]
     Route: 065
  2. CARBOPLATIN [Suspect]
     Indication: METASTATIC NEOPLASM
     Route: 065
  3. VINORELBINE [Suspect]
     Route: 065
  4. DOXORUBICIN HYDROCHLORIDE [Suspect]
     Route: 042
  5. GEMCITABINE HYDROCHLORIDE [Suspect]
     Route: 065
  6. VINORELBINE [Suspect]
     Indication: METASTATIC NEOPLASM
     Route: 065
  7. VINORELBINE [Suspect]
     Route: 065
  8. GEMCITABINE HYDROCHLORIDE [Suspect]
     Route: 065
  9. DOXORUBICIN HYDROCHLORIDE [Suspect]
     Route: 042
  10. DOXORUBICIN HYDROCHLORIDE [Suspect]
     Route: 042
  11. GEMCITABINE HYDROCHLORIDE [Suspect]
     Route: 065
  12. VINORELBINE [Suspect]
     Route: 065
  13. DOXORUBICIN HYDROCHLORIDE [Suspect]
     Route: 042
  14. CARBOPLATIN [Suspect]
     Route: 065
  15. CARBOPLATIN [Suspect]
     Route: 065
  16. PACLITAXEL [Suspect]
     Route: 065
  17. PACLITAXEL [Suspect]
     Route: 065
  18. PACLITAXEL [Suspect]
     Route: 065
  19. GEMCITABINE HYDROCHLORIDE [Suspect]
     Indication: METASTATIC NEOPLASM
     Route: 065
  20. DOXORUBICIN HYDROCHLORIDE [Suspect]
     Indication: METASTATIC NEOPLASM
     Route: 042
  21. PACLITAXEL [Suspect]
     Indication: METASTATIC NEOPLASM
     Route: 065
  22. GEMCITABINE HYDROCHLORIDE [Suspect]
     Route: 065
  23. DOXORUBICIN HYDROCHLORIDE [Suspect]
     Route: 042
  24. CARBOPLATIN [Suspect]
     Route: 065
  25. PACLITAXEL [Suspect]
     Route: 065
  26. VINORELBINE [Suspect]
     Route: 065

REACTIONS (6)
  - METASTASES TO OVARY [None]
  - METASTATIC NEOPLASM [None]
  - ENDOMETRIAL CANCER [None]
  - METASTASES TO PERITONEUM [None]
  - DEATH [None]
  - METASTASES TO FALLOPIAN TUBE [None]
